FAERS Safety Report 16698594 (Version 2)
Quarter: 2019Q3

REPORT INFORMATION
  Report Type: Spontaneous
  Country: US (occurrence: US)
  Receive Date: 20190813
  Receipt Date: 20190816
  Transmission Date: 20191004
  Serious: Yes (Other)
  Sender: FDA-Public Use
  Company Number: US-PFIZER INC-2019343847

PATIENT
  Age: 63 Year
  Sex: Female

DRUGS (1)
  1. CEFUROXIME. [Suspect]
     Active Substance: CEFUROXIME
     Dosage: UNK (1 MG/0.1 ML, CEFUROXIME SOLUTION WAS INJECTED INTO THE ANTERIOR CHAMBER)
     Route: 031

REACTIONS (5)
  - Serous retinal detachment [Recovered/Resolved]
  - Visual acuity reduced [Recovered/Resolved]
  - Product use issue [Unknown]
  - Cystoid macular oedema [Recovered/Resolved]
  - Off label use [Unknown]
